FAERS Safety Report 9228972 (Version 1)
Quarter: 2013Q2

REPORT INFORMATION
  Report Type: Spontaneous
  Country: US (occurrence: US)
  Receive Date: 20130412
  Receipt Date: 20130412
  Transmission Date: 20140414
  Serious: No
  Sender: FDA-Public Use
  Company Number: US-PFIZER INC-2013114145

PATIENT
  Age: 71 Year
  Sex: Female
  Weight: 77.1 kg

DRUGS (9)
  1. EFFEXOR XR [Suspect]
     Indication: BIPOLAR DISORDER
     Dosage: UNK
     Route: 048
  2. EFFEXOR XR [Suspect]
     Dosage: 150 MG, 2X/DAY
     Route: 048
  3. METFORMIN HCL [Suspect]
     Indication: DIABETES MELLITUS
     Dosage: UNK
  4. SIMVASTATIN [Suspect]
     Indication: BLOOD CHOLESTEROL INCREASED
     Dosage: 20 MG, DAILY
  5. LAMICTAL [Suspect]
     Indication: BIPOLAR DISORDER
     Dosage: 150 MG, DAILY
  6. PEPCID [Suspect]
     Indication: GASTROOESOPHAGEAL REFLUX DISEASE
     Dosage: 40 MG, 2X/DAY
  7. KLONOPIN [Suspect]
     Indication: ANXIETY
     Dosage: 0.5 MG, DAILY
  8. KLONOPIN [Suspect]
     Indication: PANIC ATTACK
  9. KLONOPIN [Suspect]
     Indication: DEPRESSION

REACTIONS (2)
  - Hyperhidrosis [Not Recovered/Not Resolved]
  - Off label use [Not Recovered/Not Resolved]
